FAERS Safety Report 14027974 (Version 1)
Quarter: 2017Q3

REPORT INFORMATION
  Report Type: Spontaneous
  Country: US (occurrence: None)
  Receive Date: 20170929
  Receipt Date: 20170929
  Transmission Date: 20171128
  Serious: No
  Sender: FDA-Public Use
  Company Number: None

PATIENT
  Sex: Female

DRUGS (1)
  1. LUPRON [Suspect]
     Active Substance: LEUPROLIDE ACETATE
     Indication: MENORRHAGIA
     Dosage: 11.25 MG EVERY 3 MONTHS IM
     Route: 030
     Dates: start: 20170710, end: 20170929

REACTIONS (5)
  - Perineal pain [None]
  - Bladder pain [None]
  - Pelvic pain [None]
  - Therapy cessation [None]
  - Vaginal haemorrhage [None]
